FAERS Safety Report 20165762 (Version 1)
Quarter: 2021Q4

REPORT INFORMATION
  Report Type: Spontaneous
  Country: PL (occurrence: PL)
  Receive Date: 20211209
  Receipt Date: 20211209
  Transmission Date: 20220304
  Serious: Yes (Hospitalization, Other)
  Sender: FDA-Public Use
  Company Number: PL-VERTEX PHARMACEUTICALS-2021-019132

PATIENT
  Sex: Male

DRUGS (1)
  1. IVACAFTOR\TEZACAFTOR [Suspect]
     Active Substance: IVACAFTOR\TEZACAFTOR
     Indication: Cystic fibrosis
     Route: 048

REACTIONS (6)
  - Hospitalisation [Unknown]
  - Paranasal sinus hypersecretion [Unknown]
  - Lung disorder [Unknown]
  - Dyspnoea [Unknown]
  - Oxygen saturation decreased [Not Recovered/Not Resolved]
  - Increased bronchial secretion [Unknown]

NARRATIVE: CASE EVENT DATE: 20211001
